FAERS Safety Report 7206458-7 (Version None)
Quarter: 2010Q4

REPORT INFORMATION
  Report Type: 
  Country: None (occurrence: None)
  Receive Date: 20101221
  Receipt Date: 20101214
  Transmission Date: 20110411
  Serious: Yes (Hospitalization)
  Sender: FDA-Public Use
  Company Number: 780600

PATIENT
  Age: 71 Year
  Sex: Male
  Weight: 81.4 kg

DRUGS (6)
  1. OXALIPLATIN [Suspect]
     Indication: COLORECTAL CANCER
     Dosage: 260 MG MILLIGRAM(S)INTRAVENOUS,260 MG MILLIGRAM(S)INTRAVENOUS,260 MG MILLIGRAM(S)INTRAVENOUS
     Route: 042
  2. OXALIPLATIN [Suspect]
     Indication: COLORECTAL CANCER
     Dosage: 260 MG MILLIGRAM(S)INTRAVENOUS,260 MG MILLIGRAM(S)INTRAVENOUS,260 MG MILLIGRAM(S)INTRAVENOUS
     Route: 042
  3. OXALIPLATIN [Suspect]
     Indication: COLORECTAL CANCER
     Dosage: 260 MG MILLIGRAM(S)INTRAVENOUS,260 MG MILLIGRAM(S)INTRAVENOUS,260 MG MILLIGRAM(S)INTRAVENOUS
     Route: 042
     Dates: start: 20100621
  4. CAPECITABINE [Concomitant]
  5. DEXAMETHASONE [Concomitant]
  6. ONDANSETRON [Concomitant]

REACTIONS (4)
  - DYSPHONIA [None]
  - HYPOAESTHESIA [None]
  - MUSCLE TWITCHING [None]
  - TREMOR [None]
